FAERS Safety Report 6707140-2 (Version None)
Quarter: 2010Q2

REPORT INFORMATION
  Report Type: 
  Country: None (occurrence: None)
  Receive Date: 20100503
  Receipt Date: 20100503
  Transmission Date: 20101027
  Serious: Yes (Other)
  Sender: FDA-Public Use
  Company Number: US-PFIZER INC-2010034355

PATIENT
  Sex: Male
  Weight: 68.027 kg

DRUGS (2)
  1. XALATAN [Suspect]
     Indication: INTRAOCULAR PRESSURE INCREASED
     Dosage: ONE DROP EACH EYE DAILY
     Route: 047
     Dates: start: 20091005
  2. AMOXICILLIN [Concomitant]
     Dosage: UNK

REACTIONS (4)
  - BLOOD PRESSURE INCREASED [None]
  - HEADACHE [None]
  - RED BLOOD CELL SEDIMENTATION RATE INCREASED [None]
  - TEMPORAL ARTERITIS [None]
